FAERS Safety Report 23040386 (Version 2)
Quarter: 2023Q4

REPORT INFORMATION
  Report Type: Spontaneous
  Country: US (occurrence: US)
  Receive Date: 20231006
  Receipt Date: 20231219
  Transmission Date: 20240109
  Serious: Yes (Hospitalization, Other)
  Sender: FDA-Public Use
  Company Number: US-PFIZER INC-202300229751

PATIENT
  Age: 93 Year
  Sex: Male
  Weight: 81.65 kg

DRUGS (4)
  1. VYNDAMAX [Suspect]
     Active Substance: TAFAMIDIS
     Indication: Cardiac amyloidosis
     Dosage: 61 MG, 1X/DAY
     Dates: start: 20211119
  2. TORSEMIDE [Concomitant]
     Active Substance: TORSEMIDE
     Dosage: 20MG OR MORE
     Dates: start: 20181228
  3. ELIQUIS [Concomitant]
     Active Substance: APIXABAN
     Dosage: 2.5 MG
     Dates: start: 20210914
  4. LOVASTATIN [Concomitant]
     Active Substance: LOVASTATIN
     Dosage: 20 MG

REACTIONS (3)
  - Dementia [Not Recovered/Not Resolved]
  - Cardiac failure congestive [Not Recovered/Not Resolved]
  - Dyspnoea [Not Recovered/Not Resolved]

NARRATIVE: CASE EVENT DATE: 20230601
